FAERS Safety Report 9839849 (Version 1)
Quarter: 2014Q1

REPORT INFORMATION
  Report Type: Spontaneous
  Country: BR (occurrence: BR)
  Receive Date: 20140124
  Receipt Date: 20140124
  Transmission Date: 20141002
  Serious: Yes (Other)
  Sender: FDA-Public Use
  Company Number: BR-AMGEN-BRASP2014005055

PATIENT
  Age: 63 Year
  Sex: Female
  Weight: 60 kg

DRUGS (8)
  1. ENBREL [Suspect]
     Indication: RHEUMATOID ARTHRITIS
     Dosage: 25 MG, 2X/WEEK
     Route: 058
  2. ENBREL [Suspect]
     Dosage: UNK
     Route: 065
     Dates: start: 201208
  3. CHLOROQUINE HYDROCHLORIDE [Concomitant]
     Dosage: UNK
  4. LEVOTHYROXINE [Concomitant]
     Dosage: UNK
  5. SINVASTACOR [Concomitant]
     Dosage: UNK
  6. SELOZOK [Concomitant]
     Dosage: UNK
  7. GLIFAGE [Concomitant]
     Dosage: UNK
  8. LOSARTAN [Concomitant]
     Dosage: UNK

REACTIONS (4)
  - Diabetes mellitus [Unknown]
  - Syncope [Unknown]
  - Fall [Unknown]
  - Head injury [Unknown]
